FAERS Safety Report 23173721 (Version 1)
Quarter: 2023Q4

REPORT INFORMATION
  Report Type: Spontaneous
  Country: HK (occurrence: HK)
  Receive Date: 20231111
  Receipt Date: 20231111
  Transmission Date: 20240109
  Serious: Yes (Hospitalization)
  Sender: FDA-Public Use
  Company Number: HK-drreddys-SPO/HNG/23/0182961

PATIENT
  Age: 61 Year
  Sex: Female

DRUGS (6)
  1. CAPECITABINE [Suspect]
     Active Substance: CAPECITABINE
     Indication: Product used for unknown indication
     Dosage: EVERY 2 WEEKS
  2. CAPECITABINE [Suspect]
     Active Substance: CAPECITABINE
     Dosage: EVERY 2 WEEKS
  3. IRINOTECAN [Concomitant]
     Active Substance: IRINOTECAN
     Indication: Product used for unknown indication
     Dosage: EVERY 2 WEEKS
  4. IRINOTECAN [Concomitant]
     Active Substance: IRINOTECAN
     Dosage: EVERY 2 WEEKS
  5. BEVACIZUMAB [Concomitant]
     Active Substance: BEVACIZUMAB
     Indication: Product used for unknown indication
     Dosage: EVERY 2 WEEKS
  6. CETUXIMAB [Concomitant]
     Active Substance: CETUXIMAB
     Indication: Product used for unknown indication
     Dosage: EVERY 2 WEEKS

REACTIONS (1)
  - Terminal ileitis [Recovered/Resolved]
